FAERS Safety Report 25440228 (Version 1)
Quarter: 2025Q2

REPORT INFORMATION
  Report Type: Spontaneous
  Country: TR (occurrence: TR)
  Receive Date: 20250616
  Receipt Date: 20250616
  Transmission Date: 20250716
  Serious: Yes (Other)
  Sender: PFIZER
  Company Number: TR-PFIZER INC-PV202500071627

PATIENT
  Age: 49 Year
  Sex: Female

DRUGS (2)
  1. FLUCONAZOLE [Suspect]
     Active Substance: FLUCONAZOLE
     Indication: Fungal infection
  2. METRONIDAZOLE BENZOATE [Suspect]
     Active Substance: METRONIDAZOLE BENZOATE
     Indication: Fungal infection

REACTIONS (12)
  - Mental impairment [Unknown]
  - Somnolence [Unknown]
  - Neurological symptom [Unknown]
  - Illusion [Unknown]
  - Asthenia [Unknown]
  - Pain [Unknown]
  - Hepatic pain [Unknown]
  - Renal pain [Unknown]
  - Hypokinesia [Unknown]
  - Headache [Unknown]
  - Blood uric acid increased [Unknown]
  - Slow speech [Unknown]
